FAERS Safety Report 8681653 (Version 3)
Quarter: 2012Q4

REPORT INFORMATION
  Report Type: 
  Country: US (occurrence: US)
  Receive Date: 20120725
  Receipt Date: 20120830
  Transmission Date: 20130627
  Serious: Yes (Hospitalization)
  Sender: FDA-Public Use
  Company Number: US-ASTELLAS-2012US006329

PATIENT
  Age: 63 Year
  Sex: Male
  Weight: 67 kg

DRUGS (5)
  1. TARCEVA [Suspect]
     Indication: PANCREATIC CARCINOMA
     Dosage: 100 mg, UID/QD
     Route: 048
     Dates: start: 20120629, end: 20120718
  2. GEMCITABINE [Suspect]
     Indication: PANCREATIC CARCINOMA
     Dosage: 1000 mg/m2, Weekly
     Route: 042
     Dates: start: 20120608, end: 20120713
  3. COUMADIN /00014802/ [Concomitant]
     Indication: PULMONARY EMBOLISM
     Dosage: 3 mg, Unknown/D
     Route: 048
     Dates: start: 201206
  4. ZOLOFT [Concomitant]
     Indication: DEPRESSION
     Dosage: 100 mg, Unknown/D
     Route: 048
     Dates: start: 20120629
  5. ZOMETA [Concomitant]
     Indication: PRODUCT USED FOR UNKNOWN INDICATION
     Dosage: 1 DF, Monthly
     Route: 042

REACTIONS (2)
  - Lung disorder [Unknown]
  - Interstitial lung disease [Not Recovered/Not Resolved]
